FAERS Safety Report 17181908 (Version 1)
Quarter: 2019Q4

REPORT INFORMATION
  Report Type: Spontaneous
  Country: US (occurrence: US)
  Receive Date: 20191219
  Receipt Date: 20191219
  Transmission Date: 20200122
  Serious: Yes (Other)
  Sender: FDA-Public Use
  Company Number: US-009507513-1912USA007229

PATIENT
  Age: 66 Year
  Sex: Female

DRUGS (2)
  1. ZETIA [Suspect]
     Active Substance: EZETIMIBE
     Indication: BLOOD CHOLESTEROL INCREASED
     Dosage: ONCE A DAY
     Route: 048
  2. LISINOPRIL. [Concomitant]
     Active Substance: LISINOPRIL
     Dosage: UNK

REACTIONS (5)
  - Product dose omission [Unknown]
  - Lymphoedema [Unknown]
  - Hypertension [Unknown]
  - Abdominal pain upper [Not Recovered/Not Resolved]
  - Brain neoplasm [Unknown]

NARRATIVE: CASE EVENT DATE: 2019
